FAERS Safety Report 7122972-7 (Version None)
Quarter: 2010Q4

REPORT INFORMATION
  Report Type: 
  Country: None (occurrence: None)
  Receive Date: 20101124
  Receipt Date: 20101115
  Transmission Date: 20110411
  Serious: Yes (Hospitalization)
  Sender: FDA-Public Use
  Company Number: BE-AMGEN-KDC434236

PATIENT
  Sex: Male

DRUGS (6)
  1. PANITUMUMAB [Suspect]
     Indication: COLORECTAL CANCER
     Dosage: 6 MG/KG, Q2WK
     Route: 042
     Dates: start: 20100608, end: 20100810
  2. AUGMENTIN [Concomitant]
     Dosage: UNK UNK, UNK
     Dates: end: 20100803
  3. MINOCYCLINE [Concomitant]
     Dosage: 100 MG, QD
     Route: 048
     Dates: start: 20100622
  4. FOLINIC ACID [Concomitant]
     Dosage: UNK UNK, UNK
     Dates: start: 20100608
  5. FLUOROURACIL [Concomitant]
     Dosage: UNK UNK, UNK
     Dates: start: 20100608
  6. OXALIPLATIN [Concomitant]
     Dosage: UNK UNK, UNK
     Dates: start: 20100608

REACTIONS (3)
  - EOSINOPHILIC PNEUMONIA [None]
  - ESCHERICHIA INFECTION [None]
  - PNEUMONIA [None]
